FAERS Safety Report 8508932-X (Version None)
Quarter: 2012Q3

REPORT INFORMATION
  Report Type: 
  Country: None (occurrence: None)
  Receive Date: 20120713
  Receipt Date: 20120706
  Transmission Date: 20120928
  Serious: Yes (Other)
  Sender: FDA-Public Use
  Company Number: JP-JNJFOC-20120703979

PATIENT

DRUGS (1)
  1. RISPERDAL [Suspect]
     Indication: DEPRESSION
     Route: 048

REACTIONS (2)
  - INTERSTITIAL LUNG DISEASE [None]
  - EOSINOPHILIC PNEUMONIA [None]
